FAERS Safety Report 23356794 (Version 2)
Quarter: 2024Q4

REPORT INFORMATION
  Report Type: Spontaneous
  Country: BR (occurrence: BR)
  Receive Date: 20240102
  Receipt Date: 20241021
  Transmission Date: 20250115
  Serious: Yes (Other)
  Sender: BAYER HEALTHCARE PHARMACEUTICALS INC.
  Company Number: BR-BAYER-2023A184558

PATIENT
  Sex: Female

DRUGS (1)
  1. MIRENA [Suspect]
     Active Substance: LEVONORGESTREL
     Dosage: 20?G/DAY
     Route: 015
     Dates: start: 2015, end: 2024

REACTIONS (5)
  - Hypothyroidism [None]
  - Acne [Recovered/Resolved]
  - Weight increased [Recovering/Resolving]
  - Fatigue [None]
  - Hypersomnia [None]

NARRATIVE: CASE EVENT DATE: 20160101
